FAERS Safety Report 17920191 (Version 1)
Quarter: 2020Q2

REPORT INFORMATION
  Report Type: Spontaneous
  Country: CA (occurrence: CA)
  Receive Date: 20200620
  Receipt Date: 20200620
  Transmission Date: 20200714
  Serious: Yes (Hospitalization)
  Sender: FDA-Public Use
  Company Number: CA-ACCORD-185962

PATIENT
  Age: 82 Year
  Sex: Female

DRUGS (20)
  1. ATORVASTATIN/ATORVASTATIN CALCIUM [Suspect]
     Active Substance: ATORVASTATIN CALCIUM
     Indication: PRODUCT USED FOR UNKNOWN INDICATION
     Dosage: 1 EVERY 1 DAYS
     Route: 048
  2. METFORMIN [Suspect]
     Active Substance: METFORMIN HYDROCHLORIDE
     Indication: PRODUCT USED FOR UNKNOWN INDICATION
     Dosage: 2 EVERY 1 DAYS
     Route: 048
  3. OCTREOTIDE. [Suspect]
     Active Substance: OCTREOTIDE
     Indication: NEUROENDOCRINE TUMOUR
     Dosage: 1 EVERY 1 MONTHS
     Route: 030
  4. SERTRALINE [Concomitant]
     Active Substance: SERTRALINE HYDROCHLORIDE
     Dosage: 1 EVERY 1 DAYS
     Route: 048
  5. ERGOCALCIFEROL. [Suspect]
     Active Substance: ERGOCALCIFEROL
     Indication: PRODUCT USED FOR UNKNOWN INDICATION
     Dosage: NOT SPECIFIED. 2 EVERY 1 DAYS
     Route: 048
  6. GABAPENTIN. [Concomitant]
     Active Substance: GABAPENTIN
     Dosage: 1 EVERY 1 DAYS
     Route: 048
  7. VITIS VINIFERA (GRAPE) FLOWER EXTRACT [Concomitant]
     Active Substance: VITIS VINIFERA FLOWERING TOP
     Route: 048
  8. HYDROCHLOROTHIAZIDE. [Concomitant]
     Active Substance: HYDROCHLOROTHIAZIDE
     Dosage: 1 EVERY 1 DAYS
  9. IMODIUM [Concomitant]
     Active Substance: LOPERAMIDE HYDROCHLORIDE
     Route: 048
  10. NOVORAPID [Concomitant]
     Active Substance: INSULIN ASPART
     Dosage: SOLUTION SUBCUTANEOUS
     Route: 065
  11. LANTUS [Concomitant]
     Active Substance: INSULIN GLARGINE
     Dosage: SOLUTION SUBCUTANEOUS
     Route: 058
  12. PROPOLIS [Concomitant]
     Active Substance: PROPOLIS WAX
     Dosage: DROPS ORAL
  13. VERAPAMIL [Concomitant]
     Active Substance: VERAPAMIL HYDROCHLORIDE
     Dosage: 1 EVERY 1 DAYS
     Route: 048
  14. PANTOPRAZOLE [Suspect]
     Active Substance: PANTOPRAZOLE
     Indication: PRODUCT USED FOR UNKNOWN INDICATION
     Dosage: 2 EVERY 1 DAYS, NOT SPECIFIED
  15. INSULIN [Concomitant]
     Active Substance: INSULIN NOS
     Dosage: DROPS ORAL
     Route: 065
  16. CANNABIDIOL [Concomitant]
     Active Substance: CANNABIDIOL
     Route: 048
  17. TRAZODONE [Concomitant]
     Active Substance: TRAZODONE HYDROCHLORIDE
     Dosage: 1 EVERY 1 DAYS
     Route: 048
  18. VARENICLINE [Concomitant]
     Active Substance: VARENICLINE
     Dosage: 1 EVERY 1 DAYS
     Route: 048
  19. CLONAZEPAM. [Suspect]
     Active Substance: CLONAZEPAM
     Indication: PRODUCT USED FOR UNKNOWN INDICATION
     Route: 048
  20. PALAFER [Concomitant]
     Active Substance: FERROUS FUMARATE
     Dosage: 1 EVERY 1 DAYS
     Route: 048

REACTIONS (16)
  - Body temperature decreased [Unknown]
  - Fall [Unknown]
  - Pneumonia [Unknown]
  - Cerebrovascular accident [Unknown]
  - Hip fracture [Unknown]
  - Large intestine polyp [Unknown]
  - Cough [Unknown]
  - Dizziness [Unknown]
  - Productive cough [Unknown]
  - Blood pressure systolic increased [Unknown]
  - Wheezing [Unknown]
  - Inappropriate schedule of product administration [Unknown]
  - Bronchitis [Unknown]
  - Diarrhoea [Unknown]
  - Fatigue [Unknown]
  - Blood pressure diastolic decreased [Unknown]
